FAERS Safety Report 19953207 (Version 1)
Quarter: 2021Q4

REPORT INFORMATION
  Report Type: Spontaneous
  Country: NL (occurrence: US)
  Receive Date: 20211013
  Receipt Date: 20211013
  Transmission Date: 20220304
  Serious: Yes (Death, Hospitalization, Other)
  Sender: FDA-Public Use
  Company Number: US-MLMSERVICE-20211005-3150118-1

PATIENT
  Age: 64 Year
  Sex: Female

DRUGS (9)
  1. TACROLIMUS [Suspect]
     Active Substance: TACROLIMUS
     Indication: Prophylaxis against graft versus host disease
     Dosage: UNK UNK, UNKNOWN FREQ.
     Route: 065
     Dates: start: 201909
  2. MYCOPHENOLATE MOFETIL [Suspect]
     Active Substance: MYCOPHENOLATE MOFETIL
     Indication: Prophylaxis against graft versus host disease
     Dosage: UNK UNK, UNKNOWN FREQ.
     Route: 065
     Dates: start: 201909
  3. RITUXIMAB [Suspect]
     Active Substance: RITUXIMAB
     Indication: Acute lymphocytic leukaemia
     Dosage: UNK UNK, UNKNOWN FREQ.
     Route: 065
     Dates: start: 2018, end: 20181212
  4. CYCLOPHOSPHAMIDE [Suspect]
     Active Substance: CYCLOPHOSPHAMIDE
     Indication: Allogenic stem cell transplantation
     Dosage: UNK UNK, UNKNOWN FREQ.
     Route: 065
     Dates: start: 201907
  5. PREDNISONE [Suspect]
     Active Substance: PREDNISONE
     Indication: Prophylaxis against graft versus host disease
     Route: 065
     Dates: start: 201911
  6. ATOVAQUONE [Concomitant]
     Active Substance: ATOVAQUONE
     Indication: Babesiosis
     Route: 065
     Dates: start: 201809
  7. ATOVAQUONE [Concomitant]
     Active Substance: ATOVAQUONE
     Indication: Prophylaxis
     Route: 065
     Dates: start: 20190718, end: 20191013
  8. AZITHROMYCIN ANHYDROUS [Concomitant]
     Active Substance: AZITHROMYCIN ANHYDROUS
     Indication: Babesiosis
     Route: 048
     Dates: start: 20190718, end: 20191013
  9. FLUDARABINE [Concomitant]
     Active Substance: FLUDARABINE PHOSPHATE
     Indication: Allogenic stem cell transplantation
     Dosage: UNK UNK, UNKNOWN FREQ.
     Route: 065
     Dates: start: 201907

REACTIONS (9)
  - Thrombotic microangiopathy [Unknown]
  - Babesiosis [Unknown]
  - Escherichia sepsis [Unknown]
  - Spontaneous bacterial peritonitis [Unknown]
  - Febrile neutropenia [Unknown]
  - Staphylococcal infection [Unknown]
  - Vascular device infection [Unknown]
  - Escherichia infection [Unknown]
  - Sepsis [Unknown]

NARRATIVE: CASE EVENT DATE: 20190901
